FAERS Safety Report 9817088 (Version 2)
Quarter: 2014Q1

REPORT INFORMATION
  Report Type: Spontaneous
  Country: IE (occurrence: IE)
  Receive Date: 20140114
  Receipt Date: 20140224
  Transmission Date: 20141002
  Serious: Yes (Hospitalization)
  Sender: FDA-Public Use
  Company Number: PHHY2014IE002360

PATIENT
  Sex: Male

DRUGS (7)
  1. CICLOSPORIN [Suspect]
     Indication: DERMATITIS ATOPIC
     Dosage: 150MG TWICE DAILY AT 4 MG/KG/DAY
  2. CLOBETASOL [Concomitant]
     Indication: RASH
  3. CLOBETASOL [Concomitant]
     Indication: ECZEMA
  4. CLOBETASOL [Concomitant]
     Indication: LICHENOID KERATOSIS
  5. HYDROCORTISONE [Concomitant]
     Indication: ECZEMA
  6. MOMETASONE [Concomitant]
     Indication: ECZEMA
  7. DOXORUBICIN [Concomitant]

REACTIONS (9)
  - Kaposi^s sarcoma [Recovering/Resolving]
  - Pain in extremity [Recovering/Resolving]
  - Skin hyperpigmentation [Recovering/Resolving]
  - Skin mass [Recovering/Resolving]
  - Skin plaque [Recovering/Resolving]
  - Lymphoedema [Recovering/Resolving]
  - Lymphadenopathy [Unknown]
  - Induration [Unknown]
  - Human herpesvirus 8 infection [Unknown]
